FAERS Safety Report 18440794 (Version 1)
Quarter: 2020Q4

REPORT INFORMATION
  Report Type: Spontaneous
  Country: US (occurrence: US)
  Receive Date: 20201029
  Receipt Date: 20201029
  Transmission Date: 20210114
  Serious: No
  Sender: FDA-Public Use
  Company Number: None

PATIENT
  Sex: Male

DRUGS (16)
  1. SLOW MAG/CAL [Concomitant]
  2. ERLEADA [Suspect]
     Active Substance: APALUTAMIDE
     Indication: PROSTATE CANCER
     Route: 048
     Dates: start: 20201002
  3. SIMVASTATIN. [Concomitant]
     Active Substance: SIMVASTATIN
  4. SIROLIMUS. [Concomitant]
     Active Substance: SIROLIMUS
  5. XANAX XR [Concomitant]
     Active Substance: ALPRAZOLAM
  6. FERROUS SULF [Concomitant]
     Active Substance: FERROUS SULFATE
  7. GENGRAF [Concomitant]
     Active Substance: CYCLOSPORINE
  8. OMEPRAZOLE. [Concomitant]
     Active Substance: OMEPRAZOLE
  9. CALCIUM CIT [Concomitant]
  10. DILTIAZEM ER [Concomitant]
     Active Substance: DILTIAZEM
  11. HYDRALAZINE [Concomitant]
     Active Substance: HYDRALAZINE HYDROCHLORIDE
  12. IRON [Concomitant]
     Active Substance: IRON
  13. DOCUSATE SOD [Concomitant]
  14. ASPIRIN EC [Concomitant]
     Active Substance: ASPIRIN
  15. VITAMIN D3 [Concomitant]
     Active Substance: CHOLECALCIFEROL
  16. AMBIEN CR [Concomitant]
     Active Substance: ZOLPIDEM TARTRATE

REACTIONS (4)
  - Constipation [None]
  - Fatigue [None]
  - Arthralgia [None]
  - Hypertension [None]
